FAERS Safety Report 9858438 (Version 1)
Quarter: 2014Q1

REPORT INFORMATION
  Report Type: Spontaneous
  Country: US (occurrence: None)
  Receive Date: 20140130
  Receipt Date: 20140130
  Transmission Date: 20141002
  Serious: Yes (Hospitalization)
  Sender: FDA-Public Use
  Company Number: None

PATIENT
  Age: 68 Year
  Sex: Male
  Weight: 92.5 kg

DRUGS (1)
  1. TARCEVA [Suspect]
     Dates: end: 20140113

REACTIONS (8)
  - Malaise [None]
  - Diarrhoea [None]
  - Chills [None]
  - Body temperature increased [None]
  - Hyponatraemia [None]
  - Hypokalaemia [None]
  - Blood albumin decreased [None]
  - Blood alkaline phosphatase increased [None]
